FAERS Safety Report 10152955 (Version 2)
Quarter: 2014Q2

REPORT INFORMATION
  Report Type: Spontaneous
  Country: US (occurrence: US)
  Receive Date: 20140505
  Receipt Date: 20140520
  Transmission Date: 20141212
  Serious: Yes (Death)
  Sender: FDA-Public Use
  Company Number: US-CELGENEUS-163-21880-14045694

PATIENT
  Sex: Female

DRUGS (2)
  1. REVLIMID [Suspect]
     Indication: PLASMA CELL MYELOMA
     Dosage: 15 MILLIGRAM
     Route: 048
     Dates: start: 201208
  2. REVLIMID [Suspect]
     Dosage: 2.5 MILLIGRAM
     Route: 048
     Dates: start: 20140228

REACTIONS (2)
  - Renal failure [Fatal]
  - Sepsis [Fatal]
